FAERS Safety Report 6316482-4 (Version None)
Quarter: 2009Q3

REPORT INFORMATION
  Report Type: 
  Country: None (occurrence: None)
  Receive Date: 20090820
  Receipt Date: 20090817
  Transmission Date: 20100115
  Serious: Yes (Hospitalization, Other)
  Sender: FDA-Public Use
  Company Number: US-BAYER-200930129NA

PATIENT
  Age: 43 Year
  Sex: Female
  Weight: 100 kg

DRUGS (4)
  1. YAZ [Suspect]
     Indication: CONTRACEPTION
     Route: 048
     Dates: start: 20090301, end: 20090814
  2. LYRICA [Concomitant]
  3. AMANDATINE [Concomitant]
  4. MS MEDICATION NOS [Concomitant]

REACTIONS (4)
  - DYSPNOEA EXERTIONAL [None]
  - HEART RATE INCREASED [None]
  - PULMONARY EMBOLISM [None]
  - WEIGHT DECREASED [None]
